FAERS Safety Report 25576751 (Version 1)
Quarter: 2025Q3

REPORT INFORMATION
  Report Type: Spontaneous
  Country: EU (occurrence: EU)
  Receive Date: 20250718
  Receipt Date: 20250718
  Transmission Date: 20251020
  Serious: Yes (Hospitalization)
  Sender: RANBAXY
  Company Number: EU-SUN PHARMACEUTICAL INDUSTRIES LTD-2025RR-517956

PATIENT
  Age: 16 Year
  Sex: Male

DRUGS (4)
  1. DESLORATADINE [Suspect]
     Active Substance: DESLORATADINE
     Indication: Urticaria
     Dosage: 5 MILLIGRAM, DAILY
     Route: 048
     Dates: start: 20240620, end: 20240620
  2. ACETAMINOPHEN [Suspect]
     Active Substance: ACETAMINOPHEN
     Indication: Procedural pain
     Dosage: 5 MILLIGRAM, DAILY
     Route: 048
     Dates: start: 20240620, end: 20240620
  3. CODEINE [Suspect]
     Active Substance: CODEINE
     Indication: Procedural pain
     Route: 048
     Dates: start: 20240620, end: 20240620
  4. PRISTINAMYCIN [Suspect]
     Active Substance: PRISTINAMYCIN
     Indication: Prophylaxis
     Route: 048
     Dates: start: 20240620, end: 20240620

REACTIONS (1)
  - Pancreatitis acute [Recovered/Resolved]

NARRATIVE: CASE EVENT DATE: 20240620
